FAERS Safety Report 6426330-X (Version None)
Quarter: 2009Q4

REPORT INFORMATION
  Report Type: 
  Country: None (occurrence: None)
  Receive Date: 20091104
  Receipt Date: 20091028
  Transmission Date: 20100525
  Serious: Yes (Other)
  Sender: FDA-Public Use
  Company Number: GB-BAYER-200912080BNE

PATIENT
  Age: 64 Year
  Sex: Male

DRUGS (5)
  1. CIPROXIN [Suspect]
     Indication: PROSTATITIS
     Dosage: TOTAL DAILY DOSE: 1000 MG
     Route: 048
  2. PLAVIX [Interacting]
     Indication: HYPERTENSION
     Route: 048
     Dates: start: 20050101
  3. AMLODIPINE [Concomitant]
     Indication: HYPERTENSION
     Dosage: TOTAL DAILY DOSE: 5 MG
     Route: 048
     Dates: start: 20030101
  4. COZAAR [Concomitant]
     Indication: HYPERTENSION
     Route: 048
     Dates: start: 20030101
  5. GLUCOPHAGE [Concomitant]
     Indication: TYPE 2 DIABETES MELLITUS
     Dosage: TOTAL DAILY DOSE: 10 MG
     Route: 048
     Dates: start: 20050101

REACTIONS (9)
  - ANGIOEDEMA [None]
  - COUGH [None]
  - DRUG INTERACTION [None]
  - DYSPNOEA [None]
  - HYPERSENSITIVITY [None]
  - PRURITUS [None]
  - RASH MACULO-PAPULAR [None]
  - URTICARIA [None]
  - WHEEZING [None]
